FAERS Safety Report 8275088-0 (Version None)
Quarter: 2012Q2

REPORT INFORMATION
  Report Type: 
  Country: None (occurrence: None)
  Receive Date: 20120411
  Receipt Date: 20120405
  Transmission Date: 20120825
  Serious: Yes (Other)
  Sender: FDA-Public Use
  Company Number: US-PFIZER INC-2012087000

PATIENT
  Sex: Male

DRUGS (4)
  1. FLOMAX [Concomitant]
     Dosage: UNK
  2. MOBIC [Concomitant]
     Dosage: UNK
  3. DILANTIN-125 [Suspect]
     Indication: CONVULSION
     Dosage: 100 MG 4 QHS, 50 MG 1 QHS
  4. VALTURNA [Concomitant]
     Dosage: UNK

REACTIONS (2)
  - HYPERTENSION [None]
  - CONVULSION [None]
